FAERS Safety Report 7568256-4 (Version None)
Quarter: 2011Q2

REPORT INFORMATION
  Report Type: 
  Country: None (occurrence: None)
  Receive Date: 20110623
  Receipt Date: 20110617
  Transmission Date: 20111010
  Serious: Yes (Hospitalization)
  Sender: FDA-Public Use
  Company Number: US-ACTELION-A-US2011-50155

PATIENT

DRUGS (3)
  1. REVATIO [Concomitant]
  2. TRACLEER [Suspect]
     Indication: PULMONARY ARTERIAL HYPERTENSION
     Dosage: UNK
     Route: 048
     Dates: start: 20110517
  3. COUMADIN [Concomitant]

REACTIONS (9)
  - WEIGHT DECREASED [None]
  - FLUID RETENTION [None]
  - WEIGHT INCREASED [None]
  - OEDEMA [None]
  - DYSPNOEA [None]
  - FACE OEDEMA [None]
  - LOCALISED OEDEMA [None]
  - EYE SWELLING [None]
  - PLEURAL EFFUSION [None]
